FAERS Safety Report 7820020 (Version 7)
Quarter: 2012Q4

REPORT INFORMATION
  Report Type: 
  Country: JP (occurrence: JP)
  Receive Date: 20110221
  Receipt Date: 20120927
  Transmission Date: 20130627
  Serious: Yes (Hospitalization, Other)
  Sender: FDA-Public Use
  Company Number: PHHY2011JP10611

PATIENT
  Age: 77 Year
  Sex: Male

DRUGS (10)
  1. ZYLORIC [Concomitant]
     Dosage: 100 mg, UNK
     Route: 048
     Dates: start: 20100922
  2. BLOPRESS [Concomitant]
     Dosage: 8 mg, UNK
     Route: 048
     Dates: start: 20100922
  3. CARDENALIN [Concomitant]
     Dosage: 2 mg, UNK
     Route: 048
     Dates: start: 20100922
  4. ADALAT [Concomitant]
     Dosage: 20 mg, UNK
     Route: 048
     Dates: start: 20100922
  5. LASIX [Concomitant]
     Dosage: 20 mg, UNK
     Route: 048
     Dates: start: 20100922
  6. KALIMATE [Concomitant]
     Dosage: 10 mg, UNK
     Route: 048
     Dates: start: 20100922
  7. DECADRON [Concomitant]
     Route: 048
     Dates: start: 20100922
  8. COMELIAN [Concomitant]
     Dosage: 30 mg, UNK
     Route: 048
     Dates: start: 20100922
  9. AFINITOR [Suspect]
     Indication: METASTATIC RENAL CELL CARCINOMA
     Dosage: 10 mg, daily
     Route: 048
     Dates: start: 20100904, end: 20100917
  10. AFINITOR [Suspect]
     Dosage: 5 mg, daily
     Route: 048
     Dates: start: 20100918, end: 20100922

REACTIONS (10)
  - Atelectasis [Recovering/Resolving]
  - Respiratory distress [Unknown]
  - Hilar lymphadenopathy [Recovering/Resolving]
  - Pleural effusion [Unknown]
  - Lymphangiosis carcinomatosa [Recovered/Resolved]
  - Hyperglycaemia [Recovering/Resolving]
  - Renal failure [Recovering/Resolving]
  - Anaemia [Recovering/Resolving]
  - C-reactive protein increased [Unknown]
  - Pyrexia [Recovered/Resolved]
